FAERS Safety Report 10465310 (Version 1)
Quarter: 2014Q3

REPORT INFORMATION
  Report Type: Spontaneous
  Country: DK (occurrence: GB)
  Receive Date: 20140919
  Receipt Date: 20140919
  Transmission Date: 20150326
  Serious: Yes (Hospitalization, Other)
  Sender: FDA-Public Use
  Company Number: GB-FRI-1000070779

PATIENT
  Age: 44 Year
  Sex: Female

DRUGS (9)
  1. ESCITALOPRAM [Suspect]
     Active Substance: ESCITALOPRAM OXALATE
     Route: 048
  2. RAMIPRIL. [Suspect]
     Active Substance: RAMIPRIL
  3. CODEINE [Concomitant]
     Active Substance: CODEINE
  4. PARACETAMOL [Concomitant]
     Active Substance: ACETAMINOPHEN
  5. FLUCLOXACILLIN [Concomitant]
     Active Substance: FLUCLOXACILLIN
  6. HUMALOG [Concomitant]
     Active Substance: INSULIN LISPRO
  7. FORXIGA [Suspect]
     Active Substance: DAPAGLIFLOZIN
     Indication: DIABETES MELLITUS
     Dosage: 5 MG ONCE DAILY
     Route: 048
     Dates: start: 20140624, end: 20140807
  8. FUCIBET [Concomitant]
  9. LANTUS [Concomitant]
     Active Substance: INSULIN GLARGINE

REACTIONS (5)
  - Mucosal inflammation [Unknown]
  - Stomatitis [Unknown]
  - Blister [Unknown]
  - Cheilitis [Unknown]
  - Stevens-Johnson syndrome [Unknown]

NARRATIVE: CASE EVENT DATE: 20140801
